FAERS Safety Report 9934726 (Version 2)
Quarter: 2014Q1

REPORT INFORMATION
  Report Type: Spontaneous
  Country: SK (occurrence: SK)
  Receive Date: 20140228
  Receipt Date: 20140303
  Transmission Date: 20141002
  Serious: Yes (Hospitalization)
  Sender: FDA-Public Use
  Company Number: PHHY2014SK019738

PATIENT
  Age: 15 Year
  Sex: Male
  Weight: 50 kg

DRUGS (5)
  1. DEGAN [Suspect]
     Indication: NAUSEA
     Dosage: 0.7 ML, ONCE/SINGLE
     Route: 030
     Dates: start: 20130612, end: 20130612
  2. DEGAN [Suspect]
     Indication: VOMITING
  3. COSTI [Concomitant]
     Indication: NAUSEA
     Dosage: 10 MG
     Route: 048
     Dates: start: 20130612
  4. COSTI [Concomitant]
     Indication: VOMITING
  5. COSTI [Concomitant]
     Indication: DYSPEPSIA

REACTIONS (3)
  - Gait disturbance [Recovering/Resolving]
  - Balance disorder [Recovering/Resolving]
  - Dystonia [Recovering/Resolving]
